FAERS Safety Report 10592110 (Version 3)
Quarter: 2014Q4

REPORT INFORMATION
  Report Type: Spontaneous
  Country: FR (occurrence: FR)
  Receive Date: 20141119
  Receipt Date: 20141201
  Transmission Date: 20150529
  Serious: Yes (Other)
  Sender: FDA-Public Use
  Company Number: FR-ROCHE-1445043

PATIENT
  Age: 57 Year
  Sex: Female

DRUGS (2)
  1. BONVIVA [Suspect]
     Active Substance: IBANDRONATE SODIUM
     Indication: OSTEOPOROSIS
     Route: 042
     Dates: start: 2010, end: 201210
  2. LAROXYL [Concomitant]
     Active Substance: AMITRIPTYLINE
     Indication: PAIN
     Dosage: DOSE= 7 TO 10 DROPS DAILY,
     Route: 048

REACTIONS (5)
  - Periodontitis [Unknown]
  - Pain in jaw [Not Recovered/Not Resolved]
  - Loose tooth [Recovered/Resolved with Sequelae]
  - Temporomandibular joint syndrome [Not Recovered/Not Resolved]
  - Tooth infection [Unknown]

NARRATIVE: CASE EVENT DATE: 2012
